FAERS Safety Report 5849719-6 (Version None)
Quarter: 2008Q3

REPORT INFORMATION
  Report Type: 
  Country: None (occurrence: None)
  Receive Date: 20080819
  Receipt Date: 20080807
  Transmission Date: 20090109
  Serious: Yes (Other)
  Sender: FDA-Public Use
  Company Number: BR-GENENTECH-266287

PATIENT
  Age: 50 Year
  Sex: Female

DRUGS (1)
  1. HERCEPTIN [Suspect]
     Indication: BREAST CANCER
     Dosage: 440 MG, UNK
     Route: 042
     Dates: start: 20050101

REACTIONS (3)
  - BLINDNESS [None]
  - BONE NEOPLASM MALIGNANT [None]
  - BRAIN NEOPLASM MALIGNANT [None]
